FAERS Safety Report 7591191-2 (Version None)
Quarter: 2011Q3

REPORT INFORMATION
  Report Type: 
  Country: None (occurrence: None)
  Receive Date: 20110706
  Receipt Date: 20110627
  Transmission Date: 20111222
  Serious: Yes (Hospitalization)
  Sender: FDA-Public Use
  Company Number: US-BRISTOL-MYERS SQUIBB COMPANY-15856438

PATIENT
  Age: 77 Year
  Sex: Female

DRUGS (3)
  1. WARFARIN SODIUM [Suspect]
     Indication: ATRIAL FIBRILLATION
     Route: 048
  2. ASPIRIN [Suspect]
     Route: 048
  3. DIOSMIN [Suspect]

REACTIONS (2)
  - INTRAVENTRICULAR HAEMORRHAGE [None]
  - INAPPROPRIATE ANTIDIURETIC HORMONE SECRETION [None]
